FAERS Safety Report 14023332 (Version 2)
Quarter: 2018Q1

REPORT INFORMATION
  Report Type: Report from Study
  Country: US (occurrence: US)
  Receive Date: 20170929
  Receipt Date: 20180127
  Transmission Date: 20180508
  Serious: No
  Sender: FDA-Public Use
  Company Number: PHHY2017US043121

PATIENT
  Age: 31 Year
  Sex: Male

DRUGS (1)
  1. GILENYA [Suspect]
     Active Substance: FINGOLIMOD HYDROCHLORIDE
     Indication: MULTIPLE SCLEROSIS
     Dosage: UNK, QD
     Route: 048

REACTIONS (13)
  - Lentigo [Unknown]
  - Haematocrit decreased [Recovered/Resolved]
  - Melanocytic naevus [Unknown]
  - Lymphocyte count decreased [Recovered/Resolved]
  - Paraesthesia [Unknown]
  - White blood cell count decreased [Recovered/Resolved]
  - Blood alkaline phosphatase increased [Recovered/Resolved]
  - White blood cell count decreased [Recovered/Resolved]
  - Seborrhoeic keratosis [Unknown]
  - Aspartate aminotransferase increased [Recovered/Resolved]
  - Haemangioma [Unknown]
  - Neck pain [Unknown]
  - Alanine aminotransferase increased [Recovered/Resolved]

NARRATIVE: CASE EVENT DATE: 20160216
